FAERS Safety Report 7619075-1 (Version None)
Quarter: 2011Q3

REPORT INFORMATION
  Report Type: 
  Country: None (occurrence: None)
  Receive Date: 20110718
  Receipt Date: 20110708
  Transmission Date: 20111222
  Serious: Yes (Other)
  Sender: FDA-Public Use
  Company Number: BR-ASTRAZENECA-2011SE41643

PATIENT
  Age: 71 Year
  Sex: Male

DRUGS (3)
  1. ATACAND [Suspect]
     Indication: HYPERTENSION
     Route: 048
     Dates: start: 20100101, end: 20110701
  2. FUROSEMIDE [Suspect]
     Indication: DIURETIC THERAPY
     Route: 048
     Dates: start: 20100101, end: 20110701
  3. MULTI MEDICATIONS [Concomitant]

REACTIONS (3)
  - HYPOTENSION [None]
  - VOMITING [None]
  - DIZZINESS [None]
